FAERS Safety Report 12611652 (Version 4)
Quarter: 2017Q2

REPORT INFORMATION
  Report Type: Report from Study
  Country: GR (occurrence: GR)
  Receive Date: 20160801
  Receipt Date: 20170420
  Transmission Date: 20170830
  Serious: Yes (Hospitalization, Other)
  Sender: FDA-Public Use
  Company Number: GR-JNJFOC-20160724083

PATIENT
  Age: 49 Year
  Sex: Female

DRUGS (6)
  1. SALOFALK GR [Concomitant]
     Indication: COLITIS ULCERATIVE
     Route: 048
     Dates: start: 20160725
  2. MEZAVANT [Concomitant]
     Active Substance: MESALAMINE
     Indication: COLITIS ULCERATIVE
     Route: 048
     Dates: start: 20160725
  3. SALOFALK GR [Concomitant]
     Indication: COLITIS ULCERATIVE
     Route: 048
     Dates: start: 20161013
  4. SIMPONI [Suspect]
     Active Substance: GOLIMUMAB
     Indication: COLITIS ULCERATIVE
     Route: 058
     Dates: start: 20160302, end: 20161026
  5. SIMPONI [Suspect]
     Active Substance: GOLIMUMAB
     Indication: COLITIS ULCERATIVE
     Route: 058
  6. MEZAVANT [Concomitant]
     Active Substance: MESALAMINE
     Indication: COLITIS ULCERATIVE
     Route: 048
     Dates: start: 20160411, end: 20160725

REACTIONS (3)
  - Uterine leiomyoma [Recovered/Resolved]
  - Colitis ulcerative [Recovering/Resolving]
  - Therapeutic product ineffective [Recovering/Resolving]

NARRATIVE: CASE EVENT DATE: 20160725
